FAERS Safety Report 19686514 (Version 1)
Quarter: 2021Q3

REPORT INFORMATION
  Report Type: Spontaneous
  Country: US (occurrence: US)
  Receive Date: 20210811
  Receipt Date: 20210811
  Transmission Date: 20211014
  Serious: No
  Sender: FDA-Public Use
  Company Number: US-ASTRAZENECA-2021A630755

PATIENT
  Sex: Female
  Weight: 68.9 kg

DRUGS (23)
  1. METFORMIN [Concomitant]
     Active Substance: METFORMIN HYDROCHLORIDE
  2. CALQUENCE [Suspect]
     Active Substance: ACALABRUTINIB
     Indication: LYMPHOMA
     Route: 048
  3. CALQUENCE [Concomitant]
     Active Substance: ACALABRUTINIB
  4. DICYCLOMINE [Concomitant]
     Active Substance: DICYCLOMINE HYDROCHLORIDE
  5. METHOCARAMOL [Concomitant]
  6. TRULICITY [Concomitant]
     Active Substance: DULAGLUTIDE
  7. ALLOPURINOL. [Concomitant]
     Active Substance: ALLOPURINOL
  8. CHOLESTYRAMINE. [Concomitant]
     Active Substance: CHOLESTYRAMINE
  9. D?MANNOSE [Concomitant]
  10. DULOXETINE. [Concomitant]
     Active Substance: DULOXETINE
  11. LEVOTHYROXINE. [Concomitant]
     Active Substance: LEVOTHYROXINE
  12. POTASSIUM [Concomitant]
     Active Substance: POTASSIUM
  13. TRAZODONE [Concomitant]
     Active Substance: TRAZODONE HYDROCHLORIDE
  14. VALACYCLOVIR [Concomitant]
     Active Substance: VALACYCLOVIR HYDROCHLORIDE
  15. PERCOCET [Concomitant]
     Active Substance: ACETAMINOPHEN\OXYCODONE HYDROCHLORIDE
  16. LOSARTANM [Concomitant]
  17. TRIAMCINOLONE [Concomitant]
     Active Substance: TRIAMCINOLONE
  18. BUDESONIDE. [Concomitant]
     Active Substance: BUDESONIDE
  19. ENTYVIO [Concomitant]
     Active Substance: VEDOLIZUMAB
  20. GABAPENTIN. [Concomitant]
     Active Substance: GABAPENTIN
  21. HYDROCHLOROTHIAZIDE. [Concomitant]
     Active Substance: HYDROCHLOROTHIAZIDE
  22. PANTOPRAZOLE [Concomitant]
     Active Substance: PANTOPRAZOLE
  23. ROPINIROLE. [Concomitant]
     Active Substance: ROPINIROLE

REACTIONS (3)
  - Gastrooesophageal reflux disease [Unknown]
  - Sneezing [Unknown]
  - Muscle spasms [Unknown]
